FAERS Safety Report 4902008-6 (Version None)
Quarter: 2006Q1

REPORT INFORMATION
  Report Type: 
  Country: None (occurrence: None)
  Receive Date: 20060130
  Receipt Date: 20060130
  Transmission Date: 20060701
  Serious: Yes (Hospitalization)
  Sender: FDA-Public Use
  Company Number: None

PATIENT
  Age: 63 Year
  Sex: Male
  Weight: 101.1521 kg

DRUGS (2)
  1. TAXOTERE [Suspect]
     Indication: PROSTATE CANCER
     Dosage: 65 MG/M2
     Dates: start: 20051116, end: 20061228
  2. KETOCONAZOLE [Suspect]
     Dosage: 11/16/05
     Dates: start: 20051116, end: 20060108

REACTIONS (5)
  - CONDITION AGGRAVATED [None]
  - DEPRESSION [None]
  - DYSPHONIA [None]
  - PHARYNGOLARYNGEAL PAIN [None]
  - SELF-INJURIOUS IDEATION [None]
